FAERS Safety Report 22212983 (Version 2)
Quarter: 2023Q2

REPORT INFORMATION
  Report Type: Report from Study
  Country: DE (occurrence: DE)
  Receive Date: 20230414
  Receipt Date: 20230417
  Transmission Date: 20230722
  Serious: Yes (Hospitalization)
  Sender: FDA-Public Use
  Company Number: DE-009507513-2301DEU004241

PATIENT
  Age: 70 Year
  Sex: Male
  Weight: 68 kg

DRUGS (13)
  1. PEMBROLIZUMAB [Suspect]
     Active Substance: PEMBROLIZUMAB
     Indication: Squamous cell carcinoma of head and neck
     Dosage: 200 MILLIGRAM, Q3W
     Route: 042
     Dates: start: 20220325, end: 20220915
  2. PEMBROLIZUMAB [Suspect]
     Active Substance: PEMBROLIZUMAB
     Route: 042
     Dates: start: 20220325, end: 20220915
  3. ASPIRIN [Concomitant]
     Active Substance: ASPIRIN
     Indication: Product used for unknown indication
     Dosage: [1]  100 MG DAILY, FREQ: QD
     Route: 048
     Dates: start: 201204
  4. RAMIPRIL [Concomitant]
     Active Substance: RAMIPRIL
     Indication: Product used for unknown indication
     Dosage: [16]  5 MG DAILY, FREQ: QD
     Route: 048
     Dates: start: 20220505
  5. HYDROCHLOROTHIAZIDE [Concomitant]
     Active Substance: HYDROCHLOROTHIAZIDE
     Indication: Product used for unknown indication
     Dosage: [3]  25 MG DAILY, FREQ: QD
     Route: 048
     Dates: start: 202109
  6. METOPROLOL [Concomitant]
     Active Substance: METOPROLOL
     Indication: Product used for unknown indication
     Dosage: [4]  100 MG DAILY, FREQ: BID
     Route: 048
     Dates: start: 202109
  7. AMLODIPINE [Concomitant]
     Active Substance: AMLODIPINE BESYLATE
     Indication: Product used for unknown indication
     Dosage: [5]  5 MG DAILY, FREQ: QD
     Route: 048
     Dates: start: 202109
  8. ROSUVASTATIN [Concomitant]
     Active Substance: ROSUVASTATIN
     Indication: Product used for unknown indication
     Dosage: [6]  20 MG DAILY, FREQ: QD
     Route: 048
     Dates: start: 202109
  9. ALLOPURINOL [Concomitant]
     Active Substance: ALLOPURINOL
     Indication: Product used for unknown indication
     Dosage: [7]  100 MG DAILY, FREQ: QD
     Route: 048
     Dates: start: 202109
  10. LANTUS [Concomitant]
     Active Substance: INSULIN GLARGINE
     Indication: Product used for unknown indication
     Dosage: [8]  24 IU DAILY, FREQ: QD
     Route: 058
     Dates: start: 202101
  11. METFORMIN [Concomitant]
     Active Substance: METFORMIN HYDROCHLORIDE
     Indication: Product used for unknown indication
     Dosage: [10]  200 MG DAILY, FREQ: BID
     Route: 048
     Dates: start: 20220604
  12. METFORMIN [Concomitant]
     Active Substance: METFORMIN HYDROCHLORIDE
     Dosage: [10]  2000 MG DAILY, FREQ: BID
     Route: 048
     Dates: start: 20220604
  13. ELIQUIS [Concomitant]
     Active Substance: APIXABAN
     Indication: Thrombosis prophylaxis
     Dosage: [14]  10 MG DAILY, FREQ: BID
     Route: 048
     Dates: start: 20220512

REACTIONS (1)
  - Eczema [Recovering/Resolving]

NARRATIVE: CASE EVENT DATE: 20230111
